FAERS Safety Report 7232714-2 (Version None)
Quarter: 2011Q1

REPORT INFORMATION
  Report Type: 
  Country: None (occurrence: None)
  Receive Date: 20110119
  Receipt Date: 20110117
  Transmission Date: 20110831
  Serious: Yes (Other)
  Sender: FDA-Public Use
  Company Number: FR-PFIZER INC-2010174264

PATIENT
  Age: 65 Year
  Sex: Male

DRUGS (12)
  1. ENDOXAN [Suspect]
     Indication: NEUROENDOCRINE CARCINOMA OF THE SKIN
     Dosage: 1860 MG, SINGLE
     Route: 042
     Dates: start: 20101118, end: 20101118
  2. ONCOVIN [Suspect]
     Indication: NEUROENDOCRINE CARCINOMA OF THE SKIN
     Dosage: 2 MG, SINGLE
     Route: 041
     Dates: start: 20101118, end: 20101118
  3. XATRAL [Concomitant]
  4. SETRON [Concomitant]
  5. MESNA [Concomitant]
  6. RAPAMUNE [Suspect]
     Dosage: 2 MG, 1X/DAY
     Route: 048
  7. CELLCEPT [Suspect]
     Dosage: 500 MG, 2X/DAY
     Route: 048
  8. TAREG [Concomitant]
  9. MORPHINE [Concomitant]
  10. DOXORUBICIN HCL [Suspect]
     Indication: NEUROENDOCRINE CARCINOMA OF THE SKIN
     Dosage: 74.4 MG, SINGLE
     Route: 041
     Dates: start: 20101118, end: 20101118
  11. MORPHINE SULFATE [Concomitant]
  12. SOLU-MEDROL [Concomitant]

REACTIONS (1)
  - HERPES ZOSTER [None]
